FAERS Safety Report 24593725 (Version 3)
Quarter: 2024Q4

REPORT INFORMATION
  Report Type: Spontaneous
  Country: US (occurrence: US)
  Receive Date: 20241108
  Receipt Date: 20241226
  Transmission Date: 20250115
  Serious: Yes (Other)
  Sender: PFIZER
  Company Number: US-PFIZER INC-202400295548

PATIENT
  Age: 42 Year
  Sex: Female
  Weight: 71.21 kg

DRUGS (5)
  1. DEPO-PROVERA [Suspect]
     Active Substance: MEDROXYPROGESTERONE ACETATE
     Indication: Contraception
     Dosage: UNK, EVERY 3 MONTHS (TOOK FOUR TIMES A YEAR)
     Dates: start: 2000, end: 2013
  2. MEDROXYPROGESTERONE ACETATE [Suspect]
     Active Substance: MEDROXYPROGESTERONE ACETATE
     Indication: Contraception
     Dosage: UNK , EVERY 3 MONTHS (TOOK FOUR TIMES A YEAR)
     Dates: start: 2000, end: 2013
  3. ATORVASTATIN [Concomitant]
     Active Substance: ATORVASTATIN
     Indication: Blood cholesterol increased
     Dosage: 10 MG, DAILY
  4. CARVEDILOL [Concomitant]
     Active Substance: CARVEDILOL
     Indication: Hypertension
     Dosage: 12.5 MG, 2X/DAY
  5. AMLODIPINE [Concomitant]
     Active Substance: AMLODIPINE BESYLATE
     Indication: Hypertension
     Dosage: 10 MG, 1X/DAY

REACTIONS (3)
  - Ectopic pregnancy [Unknown]
  - Blindness [Unknown]
  - Amnesia [Unknown]

NARRATIVE: CASE EVENT DATE: 20140101
